FAERS Safety Report 8017817-7 (Version None)
Quarter: 2012Q1

REPORT INFORMATION
  Report Type: 
  Country: None (occurrence: None)
  Receive Date: 20120103
  Receipt Date: 20111227
  Transmission Date: 20120608
  Serious: No
  Sender: FDA-Public Use
  Company Number: US-PFIZER INC-2011314730

PATIENT
  Sex: Female
  Weight: 60.771 kg

DRUGS (5)
  1. CIPROFLOXACIN [Suspect]
     Dosage: UNK
  2. LEVAQUIN [Suspect]
     Dosage: UNK
  3. SAVELLA [Suspect]
     Dosage: UNK
  4. FENTANYL [Suspect]
     Dosage: UNK
  5. POTASSIUM PENICILLIN G [Suspect]
     Dosage: UNK

REACTIONS (3)
  - URTICARIA [None]
  - RASH [None]
  - DRUG HYPERSENSITIVITY [None]
